FAERS Safety Report 13258065 (Version 1)
Quarter: 2017Q1

REPORT INFORMATION
  Report Type: Spontaneous
  Country: US (occurrence: US)
  Receive Date: 20170221
  Receipt Date: 20170221
  Transmission Date: 20170428
  Serious: No
  Sender: FDA-Public Use
  Company Number: US-009507513-1702USA004191

PATIENT
  Sex: Female

DRUGS (1)
  1. ASMANEX [Suspect]
     Active Substance: MOMETASONE FUROATE
     Dosage: 110 MICROGRAM, UNSPECIFIED BY REPORTER
     Route: 055

REACTIONS (4)
  - Drug dose omission [Unknown]
  - Cough [Unknown]
  - Chest discomfort [Unknown]
  - Product quality issue [Unknown]
